FAERS Safety Report 8859033 (Version 1)
Quarter: 2012Q4

REPORT INFORMATION
  Report Type: Spontaneous
  Country: US (occurrence: None)
  Receive Date: 20121022
  Receipt Date: 20121022
  Transmission Date: 20130627
  Serious: No
  Sender: FDA-Public Use
  Company Number: 1058890

PATIENT
  Sex: Female

DRUGS (1)
  1. FLUVOXAMINE MALEATE [Suspect]

REACTIONS (4)
  - Paternal drugs affecting foetus [None]
  - Abortion spontaneous [None]
  - Cytogenetic abnormality [None]
  - Exposure during pregnancy [None]
